FAERS Safety Report 4326071-9 (Version None)
Quarter: 2004Q1

REPORT INFORMATION
  Report Type: 
  Country: None (occurrence: None)
  Receive Date: 20040323
  Receipt Date: 20040316
  Transmission Date: 20041129
  Serious: Yes (Death, Hospitalization)
  Sender: FDA-Public Use
  Company Number: USA-2004-0013886

PATIENT
  Age: 53 Year
  Sex: Female
  Weight: 55.8 kg

DRUGS (3)
  1. OXYCODONE HCL [Suspect]
  2. DESIPRAMINE HCL [Suspect]
  3. LIDOCAINE [Suspect]

REACTIONS (19)
  - ANOXIC ENCEPHALOPATHY [None]
  - ASCITES [None]
  - ATHEROSCLEROSIS [None]
  - BRONCHOPNEUMONIA [None]
  - CARDIAC FAILURE CONGESTIVE [None]
  - CARDIO-RESPIRATORY ARREST [None]
  - CARDIOMEGALY [None]
  - COMA [None]
  - COMPLETED SUICIDE [None]
  - CONTUSION [None]
  - CORONARY ARTERY ATHEROSCLEROSIS [None]
  - EXCORIATION [None]
  - HEPATIC NECROSIS [None]
  - INTENTIONAL OVERDOSE [None]
  - MULTI-ORGAN FAILURE [None]
  - MULTIPLE DRUG OVERDOSE [None]
  - PLEURAL EFFUSION [None]
  - RENAL FAILURE ACUTE [None]
  - RENAL TUBULAR NECROSIS [None]
